FAERS Safety Report 14006454 (Version 1)
Quarter: 2017Q3

REPORT INFORMATION
  Report Type: Spontaneous
  Country: BR (occurrence: BR)
  Receive Date: 20170925
  Receipt Date: 20170925
  Transmission Date: 20171128
  Serious: Yes (Other)
  Sender: FDA-Public Use
  Company Number: BR-AMGEN-BRASP2017138699

PATIENT
  Age: 8 Year
  Sex: Female

DRUGS (1)
  1. ENBREL [Suspect]
     Active Substance: ETANERCEPT
     Indication: PRODUCT USED FOR UNKNOWN INDICATION
     Dosage: UNK
     Route: 065
     Dates: start: 201610

REACTIONS (6)
  - Productive cough [Unknown]
  - Respiratory tract infection [Unknown]
  - Intentional product misuse [Unknown]
  - Diarrhoea [Unknown]
  - Influenza [Recovering/Resolving]
  - Ear haemorrhage [Recovering/Resolving]
